FAERS Safety Report 9575534 (Version 1)
Quarter: 2013Q4

REPORT INFORMATION
  Report Type: Spontaneous
  Country: US (occurrence: US)
  Receive Date: 20131001
  Receipt Date: 20131001
  Transmission Date: 20140711
  Serious: No
  Sender: FDA-Public Use
  Company Number: US-AMGEN-USASP2012083501

PATIENT
  Sex: Female
  Weight: 81.63 kg

DRUGS (5)
  1. ENBREL [Suspect]
     Indication: PRODUCT USED FOR UNKNOWN INDICATION
     Dosage: 50 MG, QWK
     Route: 058
  2. DULERA [Concomitant]
     Indication: ASTHMA
     Dosage: 100-5 MCG
  3. PROTONIX [Concomitant]
     Dosage: 20 MG, UNK
  4. LEVOCETIRIZINE DIHYDROCHLORIDE [Concomitant]
     Dosage: 5 MG, UNK
  5. MIRENA [Concomitant]
     Dosage: UNK

REACTIONS (2)
  - Stress [Recovering/Resolving]
  - Rash [Recovered/Resolved]
